FAERS Safety Report 9191492 (Version 1)
Quarter: 2013Q1

REPORT INFORMATION
  Report Type: Spontaneous
  Country: US (occurrence: US)
  Receive Date: 20130326
  Receipt Date: 20130326
  Transmission Date: 20140127
  Serious: Yes (Other)
  Sender: FDA-Public Use
  Company Number: CHPA2013US004985

PATIENT
  Age: 35 Year
  Sex: Female

DRUGS (4)
  1. TRANSDERM SCOP [Suspect]
     Indication: PROPHYLAXIS OF NAUSEA AND VOMITING
     Dosage: 1 DF, Q72H
     Route: 062
     Dates: start: 20130301, end: 201303
  2. TRANSDERM SCOP [Suspect]
     Dosage: 1 DF, ONCE/SINGLE
     Route: 062
     Dates: start: 2011, end: 2011
  3. TRANSDERM SCOP [Suspect]
     Dosage: UNK, UNK
     Dates: start: 20130226
  4. TRANSDERM SCOP [Suspect]
     Dosage: 1 DF, Q72H
     Route: 062
     Dates: start: 201303

REACTIONS (8)
  - Intervertebral disc protrusion [Unknown]
  - Activities of daily living impaired [Not Recovered/Not Resolved]
  - Spinal pain [Unknown]
  - Vomiting [Recovered/Resolved]
  - Exostosis [Not Recovered/Not Resolved]
  - Nuclear magnetic resonance imaging abnormal [Unknown]
  - Procedural pain [Not Recovered/Not Resolved]
  - Post procedural swelling [Unknown]
